FAERS Safety Report 8393452-6 (Version None)
Quarter: 2012Q2

REPORT INFORMATION
  Report Type: 
  Country: None (occurrence: None)
  Receive Date: 20120529
  Receipt Date: 20120514
  Transmission Date: 20120825
  Serious: Yes (Other)
  Sender: FDA-Public Use
  Company Number: CHPA2012US011013

PATIENT
  Sex: Female

DRUGS (5)
  1. CYMBALTA [Concomitant]
     Indication: DEPRESSION
     Dosage: UNK
     Route: 048
     Dates: start: 20110101
  2. BENEFIBER PLUS HEART HEALTH [Suspect]
     Indication: IRRITABLE BOWEL SYNDROME
     Dosage: 2 TSP, QD
     Route: 048
     Dates: end: 20120407
  3. BENEFIBER W/ WHEAT DEXTRIN [Suspect]
     Indication: IRRITABLE BOWEL SYNDROME
     Dosage: 2 TSP, QD
     Route: 048
     Dates: start: 20110101, end: 20120407
  4. GAS-X PREVENTION [Suspect]
     Indication: PROPHYLAXIS
     Dosage: 1 DF, PRN
     Route: 048
     Dates: start: 20110101
  5. DRUG THERAPY NOS [Concomitant]
     Indication: BLOOD PRESSURE ABNORMAL
     Dosage: 1 UNK, QD
     Route: 048

REACTIONS (4)
  - MALAISE [None]
  - NAUSEA [None]
  - DIZZINESS [None]
  - POLYP [None]
